FAERS Safety Report 10514803 (Version 1)
Quarter: 2014Q4

REPORT INFORMATION
  Report Type: Spontaneous
  Country: US (occurrence: US)
  Receive Date: 20141013
  Receipt Date: 20141013
  Transmission Date: 20150528
  Serious: No
  Sender: FDA-Public Use
  Company Number: US-PFIZER INC-2014275504

PATIENT
  Sex: Male

DRUGS (1)
  1. VIAGRA [Suspect]
     Active Substance: SILDENAFIL CITRATE
     Dosage: 5 MG, UNK
     Route: 048
     Dates: start: 20141003, end: 20141003

REACTIONS (1)
  - Erection increased [Recovering/Resolving]

NARRATIVE: CASE EVENT DATE: 20141003
